FAERS Safety Report 13901135 (Version 1)
Quarter: 2017Q3

REPORT INFORMATION
  Report Type: Spontaneous
  Country: US (occurrence: US)
  Receive Date: 20170824
  Receipt Date: 20170824
  Transmission Date: 20171127
  Serious: No
  Sender: FDA-Public Use
  Company Number: US-ACCORD-044644

PATIENT
  Age: 29 Year
  Sex: Male
  Weight: 68.04 kg

DRUGS (4)
  1. TOPAMAX [Concomitant]
     Active Substance: TOPIRAMATE
  2. IBUPROFEN. [Concomitant]
     Active Substance: IBUPROFEN
     Dosage: 800 MG QID PRN
  3. NALTREXONE/NALTREXONE HYDROCHLORIDE [Suspect]
     Active Substance: NALTREXONE
     Indication: DRUG DEPENDENCE
     Dosage: STRENGTH: 50MG?STARTED 50 MG QD SINCE APPROX APRIL-2016 AND TEMPORARILY DISCONTINUED ON 18-SEP-2016
     Route: 048
     Dates: start: 20160921
  4. AMOXICILLIN. [Concomitant]
     Active Substance: AMOXICILLIN
     Dates: end: 20161001

REACTIONS (2)
  - Drug screen positive [Unknown]
  - Tooth extraction [None]

NARRATIVE: CASE EVENT DATE: 20160923
